FAERS Safety Report 5638177-2 (Version None)
Quarter: 2008Q1

REPORT INFORMATION
  Report Type: 
  Country: None (occurrence: None)
  Receive Date: 20080226
  Receipt Date: 20080214
  Transmission Date: 20080703
  Serious: Yes (Disabling)
  Sender: FDA-Public Use
  Company Number: SK-BRISTOL-MYERS SQUIBB COMPANY-14087472

PATIENT
  Age: 52 Year
  Sex: Female

DRUGS (5)
  1. CYCLOPHOSPHAMIDE [Suspect]
     Indication: ACUTE MYELOID LEUKAEMIA
     Dates: start: 20060322
  2. BUSULFAN [Suspect]
     Indication: ACUTE MYELOID LEUKAEMIA
     Dates: start: 20060518
  3. CYCLOSPORINE [Concomitant]
  4. METHOTREXATE [Concomitant]
  5. FRAXIPARINE [Concomitant]

REACTIONS (4)
  - CONVULSION [None]
  - GASTROINTESTINAL HAEMORRHAGE [None]
  - GRAFT VERSUS HOST DISEASE [None]
  - SUBARACHNOID HAEMORRHAGE [None]
